FAERS Safety Report 5305185-0 (Version None)
Quarter: 2007Q2

REPORT INFORMATION
  Report Type: 
  Country: None (occurrence: None)
  Receive Date: 20070416
  Receipt Date: 20070404
  Transmission Date: 20071010
  Serious: Yes (Death)
  Sender: FDA-Public Use
  Company Number: 2007US000598

PATIENT
  Sex: 0

DRUGS (4)
  1. PROGRAF [Suspect]
     Indication: PROPHYLAXIS AGAINST TRANSPLANT REJECTION
  2. GENGRAF [Concomitant]
  3. IMURAN [Concomitant]
  4. PREDNISONE TAB [Concomitant]

REACTIONS (1)
  - DEATH [None]
